FAERS Safety Report 18097094 (Version 1)
Quarter: 2020Q3

REPORT INFORMATION
  Report Type: Spontaneous
  Country: US (occurrence: US)
  Receive Date: 20200730
  Receipt Date: 20200730
  Transmission Date: 20201103
  Serious: Yes (Death, Other)
  Sender: FDA-Public Use
  Company Number: US-NOVOPROD-742430

PATIENT
  Age: 85 Year
  Sex: Female

DRUGS (1)
  1. LEVEMIR [Suspect]
     Active Substance: INSULIN DETEMIR
     Indication: DIABETES MELLITUS
     Dosage: UNK
     Route: 058

REACTIONS (5)
  - Resuscitation [Unknown]
  - Mammogram abnormal [Unknown]
  - Death [Fatal]
  - Anaesthetic complication [Unknown]
  - Expired product administered [Unknown]

NARRATIVE: CASE EVENT DATE: 20190504
